FAERS Safety Report 10452506 (Version 1)
Quarter: 2014Q3

REPORT INFORMATION
  Report Type: Spontaneous
  Country: IT (occurrence: None)
  Receive Date: 20140911
  Receipt Date: 20140911
  Transmission Date: 20150326
  Serious: Yes (Hospitalization)
  Sender: FDA-Public Use
  Company Number: IT-ZYDUS-004947

PATIENT
  Sex: Male

DRUGS (2)
  1. LEVODOPA [Suspect]
     Active Substance: LEVODOPA
     Dates: start: 2012
  2. ROPINIROLE (ROPINIROLE) [Suspect]
     Active Substance: ROPINIROLE

REACTIONS (11)
  - Pyrexia [None]
  - Dyskinesia [None]
  - Pathological gambling [None]
  - Dopamine dysregulation syndrome [None]
  - Pneumonia [None]
  - Polydipsia [None]
  - Impulse-control disorder [None]
  - Delirium [None]
  - Alcohol abuse [None]
  - Compulsive sexual behaviour [None]
  - Electrolyte imbalance [None]
